FAERS Safety Report 19891740 (Version 2)
Quarter: 2022Q1

REPORT INFORMATION
  Report Type: Report from Study
  Country: US (occurrence: US)
  Receive Date: 20210928
  Receipt Date: 20220104
  Transmission Date: 20220424
  Serious: Yes (Other)
  Sender: FDA-Public Use
  Company Number: US-EXELIXIS-CABO-21044265

PATIENT
  Age: 69 Year
  Sex: Male
  Weight: 112.79 kg

DRUGS (2)
  1. CABOMETYX [Suspect]
     Active Substance: CABOZANTINIB S-MALATE
     Indication: Renal cancer
     Dosage: 60 MG, QD
     Route: 048
     Dates: start: 20201026, end: 202109
  2. CABOMETYX [Suspect]
     Active Substance: CABOZANTINIB S-MALATE
     Dosage: 40 MG, QD
     Route: 048
     Dates: start: 20211201

REACTIONS (10)
  - Wound infection [Recovered/Resolved]
  - Limb discomfort [Not Recovered/Not Resolved]
  - Abdominal discomfort [Recovering/Resolving]
  - Limb injury [Recovered/Resolved]
  - Visual impairment [Unknown]
  - Fatigue [Recovering/Resolving]
  - Nausea [Unknown]
  - Diarrhoea [Unknown]
  - Vomiting [Unknown]
  - Sinus cancer metastatic [Unknown]

NARRATIVE: CASE EVENT DATE: 20210701
